FAERS Safety Report 9825990 (Version 2)
Quarter: 2014Q2

REPORT INFORMATION
  Report Type: Spontaneous
  Country: FR (occurrence: FR)
  Receive Date: 20140117
  Receipt Date: 20140414
  Transmission Date: 20141212
  Serious: Yes (Life-Threatening, Hospitalization)
  Sender: FDA-Public Use
  Company Number: FR-BAYER-2014-007490

PATIENT
  Age: 83 Year
  Sex: Female

DRUGS (9)
  1. IZILOX [Suspect]
     Dosage: UNK
     Route: 048
     Dates: start: 201310
  2. FLAGYL [Suspect]
     Dosage: 3 DF, QD
     Route: 048
     Dates: start: 201310
  3. IMOVANE [Suspect]
     Dosage: 1 DF, QD
     Route: 048
  4. FORLAX [Concomitant]
     Dosage: UNK
     Route: 048
  5. DAFALGAN [Concomitant]
     Dosage: 1 G, QD
     Route: 048
  6. ARIXTRA [Concomitant]
     Dosage: 1 DF, QD
     Route: 058
  7. EUPANTOL [Concomitant]
     Dosage: 1 DF, QD
     Route: 048
  8. TARDYFERON [Concomitant]
     Dosage: 1 DF, QD
     Route: 048
  9. TAHOR [Concomitant]
     Dosage: 1 DF, QD

REACTIONS (2)
  - Coma [Not Recovered/Not Resolved]
  - Leukoencephalopathy [Not Recovered/Not Resolved]
